FAERS Safety Report 5031766-8 (Version None)
Quarter: 2006Q2

REPORT INFORMATION
  Report Type: 
  Country: None (occurrence: None)
  Receive Date: 20060619
  Receipt Date: 20051212
  Transmission Date: 20061013
  Serious: Yes (Death)
  Sender: FDA-Public Use
  Company Number: 2006-143741-NL

PATIENT
  Age: 60 Year
  Sex: Male

DRUGS (8)
  1. DANAPAROID SODIUM [Suspect]
     Indication: DISSEMINATED INTRAVASCULAR COAGULATION
     Route: 042
     Dates: start: 20040526, end: 20040526
  2. OMEPRAZOLE [Concomitant]
  3. NEO NICHIPHAGEN C [Concomitant]
  4. HYDROCORTISONE SODIUM SUCCINATE [Concomitant]
  5. HUMAN RED BLOOD CELLS [Concomitant]
  6. PLASMA PROTEIN FRACTION (HUMAN) [Concomitant]
  7. NEUPOGEN [Concomitant]
  8. IMIPENEM [Concomitant]

REACTIONS (3)
  - CONDITION AGGRAVATED [None]
  - HAEMORRHAGE [None]
  - LEUKAEMIA [None]
